FAERS Safety Report 4655075-1 (Version None)
Quarter: 2005Q2

REPORT INFORMATION
  Report Type: 
  Country: None (occurrence: None)
  Receive Date: 20050503
  Receipt Date: 20050421
  Transmission Date: 20051028
  Serious: Yes (Hospitalization)
  Sender: FDA-Public Use
  Company Number: 2005AP02516

PATIENT
  Age: 73 Year
  Sex: Male
  Weight: 84 kg

DRUGS (8)
  1. PROPOFOL [Suspect]
     Dates: start: 20050120
  2. MAXOLON [Suspect]
     Dates: start: 20050120
  3. MORPHINE SULFATE [Suspect]
     Dates: start: 20050120
  4. DYNASTAT [Suspect]
     Indication: ANALGESIC EFFECT
     Dates: start: 20050120
  5. DYNASTAT [Suspect]
     Indication: SENSORY DISTURBANCE
     Dates: start: 20050120
  6. ROCURONIUM BROMIDE [Suspect]
     Dates: start: 20050120
  7. ULTANE [Suspect]
     Dates: start: 20050120
  8. SODIUM [Suspect]
     Dates: start: 20050120

REACTIONS (1)
  - CEREBROVASCULAR ACCIDENT [None]
